FAERS Safety Report 5962416-1 (Version None)
Quarter: 2008Q4

REPORT INFORMATION
  Report Type: 
  Country: None (occurrence: None)
  Receive Date: 20081121
  Receipt Date: 20081113
  Transmission Date: 20090506
  Serious: Yes (Hospitalization)
  Sender: FDA-Public Use
  Company Number: IT-MERCK-0810USA03860

PATIENT
  Age: 79 Year
  Sex: Female

DRUGS (3)
  1. HYDRODIURIL [Suspect]
     Route: 048
  2. RAMIPRIL [Suspect]
     Route: 065
  3. OLMESARTAN MEDOXOMIL [Suspect]
     Route: 065

REACTIONS (3)
  - DRUG INEFFECTIVE [None]
  - HYPERALDOSTERONISM [None]
  - HYPERTENSION [None]
